FAERS Safety Report 7381090-3 (Version None)
Quarter: 2011Q1

REPORT INFORMATION
  Report Type: 
  Country: None (occurrence: None)
  Receive Date: 20110329
  Receipt Date: 20100727
  Transmission Date: 20110831
  Serious: No
  Sender: FDA-Public Use
  Company Number: US-AMGEN-KDL427031

PATIENT
  Age: 77 Year
  Sex: Male

DRUGS (13)
  1. DIGOXIN [Concomitant]
     Dosage: UNK UNK, UNK
  2. HEPATITIS B VACCINE [Concomitant]
     Dosage: UNK UNK, UNK
  3. TAMSULOSIN HCL [Concomitant]
     Dosage: UNK UNK, UNK
  4. LISINOPRIL [Concomitant]
     Dosage: UNK UNK, UNK
  5. EPOGEN [Concomitant]
     Indication: DIALYSIS
     Dosage: UNK UNK, UNK
  6. METOPROLOL TARTRATE [Concomitant]
     Dosage: UNK UNK, UNK
  7. SENSIPAR [Suspect]
     Indication: HYPERPARATHYROIDISM SECONDARY
     Dosage: 60 MG, QD
  8. ASPIRIN [Concomitant]
     Dosage: UNK UNK, UNK
  9. CLOPIDOGREL BISULFATE [Concomitant]
     Dosage: UNK UNK, UNK
  10. SEVELAMER [Concomitant]
     Dosage: UNK UNK, UNK
  11. SIMVASTATIN [Concomitant]
     Dosage: UNK UNK, UNK
  12. PARICALCITOL [Concomitant]
     Dosage: UNK UNK, UNK
  13. TUMS [Concomitant]
     Dosage: UNK UNK, QOD

REACTIONS (1)
  - BLOOD PARATHYROID HORMONE ABNORMAL [None]
